FAERS Safety Report 13120777 (Version 1)
Quarter: 2017Q1

REPORT INFORMATION
  Report Type: Report from Study
  Country: US (occurrence: US)
  Receive Date: 20170117
  Receipt Date: 20170117
  Transmission Date: 20170428
  Serious: Yes (Hospitalization)
  Sender: FDA-Public Use
  Company Number: US-GILEAD-2016-0251004

PATIENT
  Age: 82 Year
  Sex: Female

DRUGS (20)
  1. COLACE [Concomitant]
     Active Substance: DOCUSATE SODIUM
  2. WARFARIN [Concomitant]
     Active Substance: WARFARIN
  3. LANOXIN [Concomitant]
     Active Substance: DIGOXIN
  4. COZAAR [Concomitant]
     Active Substance: LOSARTAN POTASSIUM
  5. STARLIX [Concomitant]
     Active Substance: NATEGLINIDE
  6. LASIX [Concomitant]
     Active Substance: FUROSEMIDE
  7. AMBRISENTAN [Suspect]
     Active Substance: AMBRISENTAN
     Indication: CARDIAC FAILURE
  8. ADVAIR HFA [Concomitant]
     Active Substance: FLUTICASONE PROPIONATE\SALMETEROL XINAFOATE
  9. LOSARTAN POTASSIUM. [Concomitant]
     Active Substance: LOSARTAN POTASSIUM
  10. BREO ELLIPTA [Concomitant]
     Active Substance: FLUTICASONE FUROATE\VILANTEROL TRIFENATATE
  11. COREG [Concomitant]
     Active Substance: CARVEDILOL
  12. AMBRISENTAN [Suspect]
     Active Substance: AMBRISENTAN
     Indication: PULMONARY HYPERTENSION
     Dosage: 5 MG, UNK
     Route: 065
     Dates: start: 20161107
  13. TYLENOL [Concomitant]
     Active Substance: ACETAMINOPHEN
  14. MAALOX PLUS                        /00018101/ [Concomitant]
  15. LIPITOR [Concomitant]
     Active Substance: ATORVASTATIN CALCIUM
  16. OXYGEN. [Concomitant]
     Active Substance: OXYGEN
  17. VITAMIN D                          /00107901/ [Concomitant]
     Active Substance: ERGOCALCIFEROL
  18. SIMVASTATIN. [Concomitant]
     Active Substance: SIMVASTATIN
  19. GLUCOPHAGE [Concomitant]
     Active Substance: METFORMIN HYDROCHLORIDE
  20. ASPIRIN 81 [Concomitant]
     Active Substance: ASPIRIN

REACTIONS (9)
  - Peripheral swelling [Recovered/Resolved]
  - Anxiety [Unknown]
  - Wheezing [Recovered/Resolved]
  - Hypersensitivity [Recovered/Resolved]
  - Feeling jittery [Recovered/Resolved]
  - Palpitations [Recovered/Resolved]
  - Throat tightness [Recovered/Resolved]
  - Dyspnoea [Recovered/Resolved]
  - Swelling [Unknown]

NARRATIVE: CASE EVENT DATE: 20161115
